FAERS Safety Report 8969664 (Version 1)
Quarter: 2012Q4

REPORT INFORMATION
  Report Type: 
  Country: US (occurrence: US)
  Receive Date: 20121218
  Receipt Date: 20121218
  Transmission Date: 20130627
  Serious: Yes (Other)
  Sender: FDA-Public Use
  Company Number: US-BRISTOL-MYERS SQUIBB COMPANY-16234270

PATIENT
  Age: 63 Year
  Sex: Female
  Weight: 64 kg

DRUGS (4)
  1. ABILIFY [Suspect]
     Indication: ANGER
     Dosage: 1DF=low dose (2mg-2.5mg).
5mg pills.
     Route: 048
  2. LEXAPRO [Concomitant]
     Indication: DEPRESSION
  3. DETROL LA [Concomitant]
  4. ARMOUR THYROID [Concomitant]

REACTIONS (2)
  - Salivary hypersecretion [Unknown]
  - Dyskinesia [Unknown]
